FAERS Safety Report 18108931 (Version 2)
Quarter: 2021Q2

REPORT INFORMATION
  Report Type: Spontaneous
  Country: US (occurrence: US)
  Receive Date: 20200804
  Receipt Date: 20210429
  Transmission Date: 20210717
  Serious: No
  Sender: FDA-Public Use
  Company Number: US-PFIZER INC-2020291434

PATIENT
  Age: 81 Year
  Sex: Female
  Weight: 57.15 kg

DRUGS (2)
  1. CELEBREX [Suspect]
     Active Substance: CELECOXIB
     Indication: OSTEOPOROSIS
     Dosage: 200 MG, 1X/DAY
     Route: 048
  2. FORTEO [Concomitant]
     Active Substance: TERIPARATIDE
     Indication: BONE DISORDER
     Dosage: 20 UG, DAILY (20 MCG INJECTION INTO STOMACH EVERY MORNING)
     Dates: start: 2019

REACTIONS (2)
  - Off label use [Unknown]
  - Visual impairment [Unknown]
